FAERS Safety Report 5229927-8 (Version None)
Quarter: 2007Q1

REPORT INFORMATION
  Report Type: 
  Country: None (occurrence: None)
  Receive Date: 20070206
  Receipt Date: 20060629
  Transmission Date: 20070707
  Serious: No
  Sender: FDA-Public Use
  Company Number: 1-34132332

PATIENT
  Age: 45 Year
  Sex: Female

DRUGS (2)
  1. PAXIL [Suspect]
     Indication: DRUG USE FOR UNKNOWN INDICATION
     Route: 048
  2. REBIF [Concomitant]

REACTIONS (1)
  - ANXIETY [None]
